FAERS Safety Report 4955829-8 (Version None)
Quarter: 2006Q1

REPORT INFORMATION
  Report Type: 
  Country: None (occurrence: None)
  Receive Date: 20060323
  Receipt Date: 20060314
  Transmission Date: 20060701
  Serious: Yes (Death, Hospitalization)
  Sender: FDA-Public Use
  Company Number: LTI2002A00174

PATIENT
  Sex: Male

DRUGS (2)
  1. GLICLAZIDE (GLICLAZIDE) [Suspect]
     Indication: DIABETES MELLITUS NON-INSULIN-DEPENDENT
     Dosage: ORAL
     Route: 048
     Dates: start: 20020705
  2. METFORMINE (METFORMIN) [Concomitant]

REACTIONS (4)
  - CARDIAC ARREST [None]
  - LEGIONELLA INFECTION [None]
  - OEDEMA PERIPHERAL [None]
  - RESPIRATORY FAILURE [None]
